FAERS Safety Report 22304244 (Version 1)
Quarter: 2023Q2

REPORT INFORMATION
  Report Type: Spontaneous
  Country: US (occurrence: None)
  Receive Date: 20230509
  Receipt Date: 20230509
  Transmission Date: 20230722
  Serious: Yes (Hospitalization)
  Sender: FDA-Public Use
  Company Number: None

PATIENT
  Age: 77 Year
  Sex: Female
  Weight: 67.6 kg

DRUGS (8)
  1. IBRUTINIB [Suspect]
     Active Substance: IBRUTINIB
     Indication: Chronic lymphocytic leukaemia
     Dosage: 420 MG DAILY ORAL
     Route: 048
     Dates: start: 20230417, end: 20230507
  2. ASPIRIN [Concomitant]
     Active Substance: ASPIRIN
  3. vitamin B12 1,000 mcg/mL SQ injection every month [Concomitant]
  4. diazepam 5mg PO PRN [Concomitant]
  5. divigel 0.25 mg/0.25g (0.1%) transdermal gel packet- 1 packet daily [Concomitant]
  6. medrol 4mg dose pack [Concomitant]
  7. omeprazole 20mg DR capsule daily [Concomitant]
  8. pilocarpine 5mg tablet four times daily [Concomitant]

REACTIONS (1)
  - Palpitations [None]

NARRATIVE: CASE EVENT DATE: 20230507
